FAERS Safety Report 20550900 (Version 4)
Quarter: 2024Q1

REPORT INFORMATION
  Report Type: Spontaneous
  Country: US (occurrence: US)
  Receive Date: 20220304
  Receipt Date: 20240129
  Transmission Date: 20240409
  Serious: No
  Sender: FDA-Public Use
  Company Number: US-GSKCCFUS-Case-01310191_AE-76280

PATIENT
  Age: 80 Year
  Sex: Female

DRUGS (2)
  1. TRELEGY ELLIPTA [Interacting]
     Active Substance: FLUTICASONE FUROATE\UMECLIDINIUM BROMIDE\VILANTEROL TRIFENATATE
     Indication: Product used for unknown indication
     Dosage: 100/62.5/25
     Route: 055
     Dates: start: 20220225
  2. ALBUTEROL\IPRATROPIUM [Interacting]
     Active Substance: ALBUTEROL\IPRATROPIUM
     Indication: Product used for unknown indication
     Dosage: UNK

REACTIONS (7)
  - Productive cough [Unknown]
  - Flatulence [Unknown]
  - Device use confusion [Unknown]
  - Device use error [Unknown]
  - Product dose omission issue [Unknown]
  - Off label use [Unknown]
  - Labelled drug-drug interaction issue [Unknown]

NARRATIVE: CASE EVENT DATE: 20220225
